FAERS Safety Report 6732436-8 (Version None)
Quarter: 2010Q2

REPORT INFORMATION
  Report Type: 
  Country: None (occurrence: None)
  Receive Date: 20100519
  Receipt Date: 20100512
  Transmission Date: 20101027
  Serious: Yes (Death)
  Sender: FDA-Public Use
  Company Number: US-ROCHE-703074

PATIENT
  Sex: Female
  Weight: 64.4 kg

DRUGS (1)
  1. CAPECITABINE [Suspect]
     Dosage: IN MORNING AND IN EVENING
     Route: 048
     Dates: start: 20090521

REACTIONS (1)
  - DIVERTICULAR PERFORATION [None]
